FAERS Safety Report 12336511 (Version 4)
Quarter: 2016Q3

REPORT INFORMATION
  Report Type: Report from Study
  Country: US (occurrence: US)
  Receive Date: 20160505
  Receipt Date: 20160929
  Transmission Date: 20161109
  Serious: Yes (Hospitalization, Other)
  Sender: FDA-Public Use
  Company Number: US-JNJFOC-20160503160

PATIENT
  Age: 75 Year
  Sex: Male

DRUGS (8)
  1. VITAMIN B COMPLEX [Concomitant]
     Active Substance: CYANOCOBALAMIN\DEXPANTHENOL\NIACINAMIDE\PYRIDOXINE HYDROCHLORIDE\RIBOFLAVIN 5^-PHOSPHATE SODIUM\THIAMINE HYDROCHLORIDE\VITAMIN B COMPLEX
  2. IMBRUVICA [Suspect]
     Active Substance: IBRUTINIB
     Indication: PROSTATE CANCER
     Route: 048
     Dates: start: 20141115, end: 20160830
  3. GLUCOSAMINE [Concomitant]
     Active Substance: GLUCOSAMINE
  4. LASIX [Concomitant]
     Active Substance: FUROSEMIDE
  5. IMBRUVICA [Suspect]
     Active Substance: IBRUTINIB
     Indication: CHRONIC LYMPHOCYTIC LEUKAEMIA
     Route: 048
     Dates: start: 20141115, end: 20160830
  6. VENTOLIN [Concomitant]
     Active Substance: ALBUTEROL SULFATE
  7. GLICLAZIDE [Concomitant]
     Active Substance: GLICLAZIDE
  8. XANAX [Concomitant]
     Active Substance: ALPRAZOLAM

REACTIONS (13)
  - Dehydration [Unknown]
  - Red blood cell count increased [Unknown]
  - Lower gastrointestinal haemorrhage [Unknown]
  - Sinus disorder [Unknown]
  - Blister [Not Recovered/Not Resolved]
  - Joint swelling [Unknown]
  - Fall [Unknown]
  - Laceration [Unknown]
  - Peripheral swelling [Not Recovered/Not Resolved]
  - Joint effusion [Unknown]
  - Toe amputation [Unknown]
  - Balance disorder [Unknown]
  - Laboratory test abnormal [Unknown]

NARRATIVE: CASE EVENT DATE: 2016
